FAERS Safety Report 18728954 (Version 1)
Quarter: 2021Q1

REPORT INFORMATION
  Report Type: Spontaneous
  Country: US (occurrence: US)
  Receive Date: 20210111
  Receipt Date: 20210111
  Transmission Date: 20210419
  Serious: Yes (Hospitalization)
  Sender: FDA-Public Use
  Company Number: None

PATIENT
  Age: 76 Year
  Sex: Male
  Weight: 102.1 kg

DRUGS (18)
  1. IOPAMIDOL [Concomitant]
     Active Substance: IOPAMIDOL
  2. ASCORBIC ACID. [Concomitant]
     Active Substance: ASCORBIC ACID
  3. EZETIMIBE. [Concomitant]
     Active Substance: EZETIMIBE
  4. OXYCODONE?ACETAMINOPHEN [Concomitant]
     Active Substance: ACETAMINOPHEN\OXYCODONE HYDROCHLORIDE
  5. REMDESIVIR. [Concomitant]
     Active Substance: REMDESIVIR
  6. APIXABAN [Concomitant]
     Active Substance: APIXABAN
  7. INSULIN (LISPRO AND REGULAR) [Concomitant]
  8. METOPROLOL SUCCINATE. [Concomitant]
     Active Substance: METOPROLOL SUCCINATE
  9. TAMSULOSIN [Concomitant]
     Active Substance: TAMSULOSIN
  10. BAMLANIVIMAB. [Suspect]
     Active Substance: BAMLANIVIMAB
     Indication: SARS-COV-2 TEST POSITIVE
     Dosage: ?          OTHER FREQUENCY:ONCE;?
     Route: 041
  11. VITAMIN D [Concomitant]
     Active Substance: VITAMIN D NOS
  12. FUROSEMIDE. [Concomitant]
     Active Substance: FUROSEMIDE
  13. METFORMIN [Concomitant]
     Active Substance: METFORMIN HYDROCHLORIDE
  14. 0.9% SODIUM CHLORIDE BOLUS AND INFUSION [Concomitant]
  15. DEXAMETHASONE. [Concomitant]
     Active Substance: DEXAMETHASONE
  16. GABAPENTIN. [Concomitant]
     Active Substance: GABAPENTIN
  17. METOPROLOL TARTRATE (IV) [Concomitant]
  18. ZINC SULFATE. [Concomitant]
     Active Substance: ZINC SULFATE

REACTIONS (13)
  - Asthenia [None]
  - Cough [None]
  - Decreased appetite [None]
  - Pyrexia [None]
  - Chills [None]
  - Diabetes mellitus [None]
  - Respiratory failure [None]
  - Dyspnoea [None]
  - Dizziness [None]
  - Chest pain [None]
  - Palpitations [None]
  - Dysuria [None]
  - Hyperglycaemia [None]

NARRATIVE: CASE EVENT DATE: 20210104
